FAERS Safety Report 8895670 (Version 1)
Quarter: 2012Q4

REPORT INFORMATION
  Report Type: 
  Country: CA (occurrence: CA)
  Receive Date: 20121108
  Receipt Date: 20121108
  Transmission Date: 20130627
  Serious: Yes (Other)
  Sender: FDA-Public Use
  Company Number: CA-ASTRAZENECA-2012SE83175

PATIENT
  Age: 67 Year
  Sex: Female
  Weight: 113 kg

DRUGS (3)
  1. NEXIUM [Suspect]
     Route: 048
  2. ANTI-HYPERTENSIVE MEDICATIONS [Concomitant]
  3. ANTICOAGULANTS [Concomitant]

REACTIONS (3)
  - Pain in extremity [Recovered/Resolved]
  - Quality of life decreased [Recovered/Resolved]
  - Sleep disorder [Recovered/Resolved]
